FAERS Safety Report 22234216 (Version 1)
Quarter: 2023Q2

REPORT INFORMATION
  Report Type: Spontaneous
  Country: US (occurrence: None)
  Receive Date: 20230420
  Receipt Date: 20230420
  Transmission Date: 20230722
  Serious: No
  Sender: FDA-Public Use
  Company Number: US-ROCHE-3157808

PATIENT
  Sex: Male

DRUGS (1)
  1. ESBRIET [Suspect]
     Active Substance: PIRFENIDONE
     Indication: Idiopathic pulmonary fibrosis
     Route: 048
     Dates: start: 20210424

REACTIONS (9)
  - Night sweats [Unknown]
  - Throat irritation [Unknown]
  - Decreased appetite [Unknown]
  - Weight decreased [Unknown]
  - Faeces discoloured [Unknown]
  - Viral infection [Unknown]
  - Anxiety [Unknown]
  - Depression [Unknown]
  - Diarrhoea [Unknown]
